FAERS Safety Report 9707318 (Version 1)
Quarter: 2013Q4

REPORT INFORMATION
  Report Type: Spontaneous
  Country: US (occurrence: US)
  Receive Date: 20131125
  Receipt Date: 20131125
  Transmission Date: 20140711
  Serious: No
  Sender: FDA-Public Use
  Company Number: US-GLAXOSMITHKLINE-A1009025A

PATIENT
  Age: 75 Year
  Sex: Female

DRUGS (7)
  1. FLOVENT [Suspect]
     Indication: ASTHMA
     Dosage: 1PUFF TWICE PER DAY
     Route: 055
     Dates: start: 201208
  2. CELEBREX [Concomitant]
  3. ZETIA [Concomitant]
  4. PRAVASTATIN [Concomitant]
  5. SINGULAIR [Concomitant]
  6. ASPIRIN LOW DOSE [Concomitant]
  7. INFLUENZA VACCINE [Concomitant]

REACTIONS (1)
  - Drug ineffective [Unknown]
